FAERS Safety Report 5684109-0 (Version None)
Quarter: 2008Q1

REPORT INFORMATION
  Report Type: 
  Country: None (occurrence: None)
  Receive Date: 20080328
  Receipt Date: 20070730
  Transmission Date: 20080703
  Serious: No
  Sender: FDA-Public Use
  Company Number: US-AMGEN-US236340

PATIENT
  Sex: Male
  Weight: 65.8 kg

DRUGS (6)
  1. NEULASTA [Suspect]
     Indication: CHEMOTHERAPY
     Route: 058
     Dates: start: 20070724, end: 20070724
  2. DOXORUBICIN HYDROCHLORIDE [Concomitant]
     Route: 065
     Dates: start: 20070723
  3. BLEOMYCIN SULFATE [Concomitant]
     Route: 065
     Dates: start: 20070723
  4. VINBLASTINE SULFATE [Concomitant]
     Route: 065
     Dates: start: 20070723
  5. DACARBAZINE [Concomitant]
     Route: 065
     Dates: start: 20070723
  6. ALOXI [Concomitant]
     Dates: start: 20070723

REACTIONS (5)
  - ANAPHYLACTIC REACTION [None]
  - DYSPHONIA [None]
  - DYSPNOEA [None]
  - PRURITUS [None]
  - RASH [None]
